FAERS Safety Report 16325882 (Version 3)
Quarter: 2021Q2

REPORT INFORMATION
  Report Type: Spontaneous
  Country: US (occurrence: US)
  Receive Date: 20190517
  Receipt Date: 20210617
  Transmission Date: 20210716
  Serious: Yes (Other)
  Sender: FDA-Public Use
  Company Number: US-PFIZER INC-2019205584

PATIENT
  Age: 75 Year
  Sex: Male

DRUGS (3)
  1. ELELYSO [Suspect]
     Active Substance: TALIGLUCERASE ALFA
     Indication: GAUCHER^S DISEASE
     Dosage: UNK, EVERY 2 WEEKS
  2. ELELYSO [Suspect]
     Active Substance: TALIGLUCERASE ALFA
     Dosage: UNK, EVERY 4 WEEKS
  3. ELELYSO [Suspect]
     Active Substance: TALIGLUCERASE ALFA
     Dosage: UNK EVERY 2 WEEKS RATHER THAN EVERY 4 WEEKS

REACTIONS (7)
  - Bone density decreased [Unknown]
  - Bone neoplasm [Unknown]
  - Arthralgia [Recovered/Resolved]
  - Product dispensing issue [Unknown]
  - Gaucher^s disease [Unknown]
  - Chitotriosidase increased [Unknown]
  - Condition aggravated [Unknown]
